FAERS Safety Report 7682812-4 (Version None)
Quarter: 2011Q3

REPORT INFORMATION
  Report Type: 
  Country: None (occurrence: None)
  Receive Date: 20110815
  Receipt Date: 20110804
  Transmission Date: 20111222
  Serious: Yes (Hospitalization, Other)
  Sender: FDA-Public Use
  Company Number: US-ROCHE-778363

PATIENT
  Sex: Male
  Weight: 67.1 kg

DRUGS (1)
  1. ACCUTANE [Suspect]
     Indication: ACNE
     Route: 065
     Dates: start: 19870101, end: 19900101

REACTIONS (17)
  - WEIGHT DECREASED [None]
  - CROHN'S DISEASE [None]
  - DIARRHOEA [None]
  - ABDOMINAL PAIN [None]
  - ANAL FISTULA [None]
  - INTESTINAL PERFORATION [None]
  - NEPHROLITHIASIS [None]
  - INTESTINAL HAEMORRHAGE [None]
  - COLITIS ULCERATIVE [None]
  - VOMITING [None]
  - URTICARIA [None]
  - CALCIUM DEFICIENCY [None]
  - IRON DEFICIENCY ANAEMIA [None]
  - SUPRAVENTRICULAR TACHYCARDIA [None]
  - ANAPHYLACTIC REACTION [None]
  - ANAL ABSCESS [None]
  - INTESTINAL OBSTRUCTION [None]
